FAERS Safety Report 21320068 (Version 1)
Quarter: 2022Q3

REPORT INFORMATION
  Report Type: Spontaneous
  Country: US (occurrence: US)
  Receive Date: 20220911
  Receipt Date: 20220911
  Transmission Date: 20221026
  Serious: No
  Sender: FDA-Public Use
  Company Number: US-SA-SAC20220906000929

PATIENT
  Age: 47 Year
  Sex: Female
  Weight: 131.99 kg

DRUGS (13)
  1. KEVZARA [Suspect]
     Active Substance: SARILUMAB
     Indication: Rheumatoid arthritis
     Dosage: 200 MG, QOW
     Route: 058
     Dates: start: 20220619
  2. TEMAZEPAM [Concomitant]
     Active Substance: TEMAZEPAM
  3. HYDROCHLOROTHIAZIDE [Concomitant]
     Active Substance: HYDROCHLOROTHIAZIDE
  4. LOSARTAN POTASSIUM [Concomitant]
     Active Substance: LOSARTAN POTASSIUM
  5. OMEPRAZOLE [Concomitant]
     Active Substance: OMEPRAZOLE
  6. NORVASC [Concomitant]
     Active Substance: AMLODIPINE BESYLATE
  7. CYMBALTA [Concomitant]
     Active Substance: DULOXETINE HYDROCHLORIDE
  8. MODAFINIL [Concomitant]
     Active Substance: MODAFINIL
  9. MEDROL [Concomitant]
     Active Substance: METHYLPREDNISOLONE
  10. SEROQUEL [Concomitant]
     Active Substance: QUETIAPINE FUMARATE
  11. VITAMINS NOS [Concomitant]
     Active Substance: VITAMINS
  12. CLONAZEPAM [Concomitant]
     Active Substance: CLONAZEPAM
  13. RASUVO [Concomitant]
     Active Substance: METHOTREXATE SODIUM

REACTIONS (1)
  - Fungal infection [Unknown]
